FAERS Safety Report 15075553 (Version 1)
Quarter: 2018Q2

REPORT INFORMATION
  Report Type: Report from Study
  Country: US (occurrence: US)
  Receive Date: 20180627
  Receipt Date: 20180627
  Transmission Date: 20180711
  Serious: Yes (Other)
  Sender: FDA-Public Use
  Company Number: US-SAOL THERAPEUTICS-2017SAO01125

PATIENT
  Age: 29 Year
  Sex: Male
  Weight: 62.13 kg

DRUGS (13)
  1. COMPOUNDED BACLOFEN [Suspect]
     Active Substance: BACLOFEN
     Indication: MUSCLE SPASTICITY
     Dosage: UNK
     Dates: start: 201701
  2. COMPOUNDED BACLOFEN [Suspect]
     Active Substance: BACLOFEN
     Indication: CEREBRAL PALSY
  3. COMPOUNDED BACLOFEN [Suspect]
     Active Substance: BACLOFEN
     Indication: MUSCLE SPASTICITY
     Dosage: UNK
     Dates: start: 20170607
  4. BENADRYL [Concomitant]
     Active Substance: DIPHENHYDRAMINE HYDROCHLORIDE
     Dosage: 25 MG, 2X/DAY
  5. LIORESAL [Suspect]
     Active Substance: BACLOFEN
     Indication: MUSCLE SPASTICITY
     Dosage: 1530 ?G, \DAY
     Route: 037
     Dates: end: 20160710
  6. LIORESAL [Suspect]
     Active Substance: BACLOFEN
     Dosage: 96 ?G, \DAY
     Route: 037
     Dates: start: 201607, end: 201607
  7. DANTRIUM [Concomitant]
     Active Substance: DANTROLENE SODIUM
     Dosage: 2-4 DOSAGE UNITS; 4X/DAY
  8. ZOTEX [Concomitant]
     Dosage: UNK, 4X/DAY
  9. LIORESAL [Suspect]
     Active Substance: BACLOFEN
     Indication: CEREBRAL PALSY
     Dosage: 11.8 ?G, UNK
     Route: 037
     Dates: start: 201607, end: 201607
  10. LIORESAL [Suspect]
     Active Substance: BACLOFEN
     Dosage: 1230.2 ?G, \DAY
     Route: 037
     Dates: start: 20160717, end: 201701
  11. VALIUM [Concomitant]
     Active Substance: DIAZEPAM
     Dosage: 1-2 DOSAGE UNITS
     Route: 048
  12. LIORESAL [Suspect]
     Active Substance: BACLOFEN
     Dosage: 1244.1 ?G, \DAY
     Route: 037
     Dates: end: 20160717
  13. COMPOUNDED BACLOFEN [Suspect]
     Active Substance: BACLOFEN
     Indication: CEREBRAL PALSY

REACTIONS (12)
  - Headache [Recovering/Resolving]
  - Insomnia [Not Recovered/Not Resolved]
  - Therapeutic response changed [Unknown]
  - Unresponsive to stimuli [Recovered/Resolved]
  - Unevaluable event [Unknown]
  - Device failure [Recovered/Resolved]
  - Muscle tightness [Recovering/Resolving]
  - Eructation [Not Recovered/Not Resolved]
  - Device battery issue [Recovered/Resolved]
  - Dystonia [Unknown]
  - Dyspepsia [Unknown]
  - Vomiting [Unknown]

NARRATIVE: CASE EVENT DATE: 201607
